FAERS Safety Report 19773583 (Version 2)
Quarter: 2021Q3

REPORT INFORMATION
  Report Type: Spontaneous
  Country: US (occurrence: US)
  Receive Date: 20210901
  Receipt Date: 20210903
  Transmission Date: 20211014
  Serious: No
  Sender: FDA-Public Use
  Company Number: US-GLAXOSMITHKLINE-US2021180831

PATIENT
  Age: 33 Year
  Sex: Female

DRUGS (2)
  1. BENLYSTA [Suspect]
     Active Substance: BELIMUMAB
     Indication: LUPUS NEPHRITIS
     Dosage: 1 DF
     Dates: start: 20210824
  2. BENLYSTA [Suspect]
     Active Substance: BELIMUMAB
     Dosage: UN4S TRD CTN 4X1.0ML 1DS PF
     Route: 058
     Dates: start: 20210824

REACTIONS (5)
  - Stomatitis [Not Recovered/Not Resolved]
  - Pain [Not Recovered/Not Resolved]
  - Wrong technique in device usage process [Recovered/Resolved]
  - Underdose [Recovered/Resolved]
  - Exposure via skin contact [Recovered/Resolved]

NARRATIVE: CASE EVENT DATE: 20210824
